FAERS Safety Report 24580608 (Version 1)
Quarter: 2024Q4

REPORT INFORMATION
  Report Type: Spontaneous
  Country: SG (occurrence: None)
  Receive Date: 20241105
  Receipt Date: 20241105
  Transmission Date: 20250115
  Serious: Yes (Hospitalization, Other)
  Sender: INFORLIFE
  Company Number: SG-INFO-20240339

PATIENT
  Age: 47 Year
  Sex: Female

DRUGS (2)
  1. ZOLEDRONIC ACID [Suspect]
     Active Substance: ZOLEDRONIC ACID
     Dates: start: 2012, end: 202301
  2. ZOLEDRONIC ACID [Suspect]
     Active Substance: ZOLEDRONIC ACID
     Dates: start: 202301

REACTIONS (2)
  - Atypical femur fracture [Recovered/Resolved]
  - Foot fracture [Recovering/Resolving]
